FAERS Safety Report 6510229-4 (Version None)
Quarter: 2009Q4

REPORT INFORMATION
  Report Type: 
  Country: None (occurrence: None)
  Receive Date: 20091222
  Receipt Date: 20091216
  Transmission Date: 20100525
  Serious: Yes (Death)
  Sender: FDA-Public Use
  Company Number: IT-SANOFI-AVENTIS-2009SA001746

PATIENT
  Age: 56 Year
  Sex: Female
  Weight: 91 kg

DRUGS (14)
  1. BLINDED THERAPY [Suspect]
     Route: 042
     Dates: start: 20091102, end: 20091102
  2. BLINDED THERAPY [Suspect]
     Route: 042
     Dates: start: 20090928, end: 20090928
  3. DOCETAXEL [Suspect]
     Route: 042
     Dates: start: 20091102, end: 20091102
  4. DOCETAXEL [Suspect]
     Route: 042
     Dates: start: 20090928, end: 20090928
  5. NISOLID [Concomitant]
     Dates: start: 20090924
  6. DELTACORTENE [Concomitant]
     Dates: start: 20090925
  7. CONTRAMAL [Concomitant]
     Dates: start: 20090819
  8. LANSOX [Concomitant]
     Dates: start: 20090819
  9. UGUROL [Concomitant]
     Dates: start: 20090713
  10. PARACODINA [Concomitant]
     Dates: start: 20090819
  11. TAREG [Concomitant]
     Dates: start: 20090915
  12. TORASEMIDE [Concomitant]
     Dates: start: 20090915
  13. EPREX /UNK/ [Concomitant]
     Dates: start: 20091102
  14. TRIMETON [Concomitant]
     Dates: start: 20091102, end: 20091102

REACTIONS (1)
  - HAEMOPTYSIS [None]
